FAERS Safety Report 4841593-X (Version None)
Quarter: 2005Q4

REPORT INFORMATION
  Report Type: 
  Country: None (occurrence: None)
  Receive Date: 20051130
  Receipt Date: 20050830
  Transmission Date: 20060501
  Serious: No
  Sender: FDA-Public Use
  Company Number: US-GLAXOSMITHKLINE-A0572411A

PATIENT
  Sex: Male

DRUGS (4)
  1. WELLBUTRIN XL [Suspect]
     Indication: DEPRESSION
     Dosage: 300MG THREE TIMES PER DAY
     Route: 048
  2. PREVACID [Concomitant]
  3. VALIUM [Concomitant]
  4. OPIATE [Concomitant]

REACTIONS (1)
  - PRESCRIBED OVERDOSE [None]
